FAERS Safety Report 24218006 (Version 1)
Quarter: 2024Q3

REPORT INFORMATION
  Report Type: Spontaneous
  Country: CN (occurrence: CN)
  Receive Date: 20240816
  Receipt Date: 20240816
  Transmission Date: 20241016
  Serious: Yes (Hospitalization, Other)
  Sender: PFIZER
  Company Number: CN-PFIZER INC-PV202400105508

PATIENT
  Age: 27 Year
  Sex: Female

DRUGS (5)
  1. LINEZOLID [Suspect]
     Active Substance: LINEZOLID
     Indication: Tuberculosis
     Dosage: 0.6 G, ONCE A DAY
     Route: 048
     Dates: start: 20240527, end: 20240730
  2. BEDAQUILINE FUMARATE [Concomitant]
     Active Substance: BEDAQUILINE FUMARATE
     Indication: Tuberculosis
     Dosage: 200 MG, 3 TIMES IN 7 DAYS
     Route: 048
     Dates: start: 20240527, end: 20240729
  3. CYCLOSERINE [Concomitant]
     Active Substance: CYCLOSERINE
     Indication: Tuberculosis
     Dosage: 0.25 G, 2X/DAY
     Route: 048
     Dates: start: 20240527, end: 20240729
  4. DELAMANID [Concomitant]
     Active Substance: DELAMANID
     Indication: Tuberculosis
     Dosage: UNK
     Dates: start: 20240527
  5. AMINOSALICYLATE SODIUM [Concomitant]
     Active Substance: AMINOSALICYLATE SODIUM
     Indication: Tuberculosis
     Dosage: 2 G, 3X/DAY
     Route: 048
     Dates: start: 20240527, end: 20240729

REACTIONS (7)
  - Asthenia [Not Recovered/Not Resolved]
  - Decreased appetite [Not Recovered/Not Resolved]
  - Nausea [Unknown]
  - Melaena [Unknown]
  - Red blood cell count decreased [Recovering/Resolving]
  - Haemoglobin decreased [Recovering/Resolving]
  - Off label use [Unknown]

NARRATIVE: CASE EVENT DATE: 20240527
